FAERS Safety Report 17865661 (Version 1)
Quarter: 2020Q2

REPORT INFORMATION
  Report Type: Spontaneous
  Country: US (occurrence: US)
  Receive Date: 20200604
  Receipt Date: 20200604
  Transmission Date: 20200714
  Serious: No
  Sender: FDA-Public Use
  Company Number: None

PATIENT
  Age: 16 Year
  Sex: Female

DRUGS (1)
  1. HUMATROPE [Suspect]
     Active Substance: SOMATROPIN
     Dosage: OTHER
     Route: 058
     Dates: start: 2018

REACTIONS (4)
  - Incorrect dose administered by device [None]
  - Device leakage [None]
  - Diabetes insipidus [None]
  - Device breakage [None]

NARRATIVE: CASE EVENT DATE: 20200604
